FAERS Safety Report 7553646-6 (Version None)
Quarter: 2011Q2

REPORT INFORMATION
  Report Type: 
  Country: None (occurrence: None)
  Receive Date: 20110617
  Receipt Date: 20101107
  Transmission Date: 20111010
  Serious: No
  Sender: FDA-Public Use
  Company Number: US-MYLANLABS-2010S1020513

PATIENT
  Age: 49 Year
  Sex: Male

DRUGS (13)
  1. LOPRESSOR [Concomitant]
  2. IRON SUCROSE [Concomitant]
     Dosage: DURING DIALYSIS
  3. EPOGEN [Concomitant]
     Dosage: DURING DIALYSIS
  4. OMEPRAZOLE [Suspect]
     Indication: DYSPEPSIA
     Route: 048
     Dates: start: 20101102, end: 20101106
  5. CALCIUM CARBONATE [Concomitant]
  6. FISH OIL [Concomitant]
  7. CELEXA [Concomitant]
  8. HECTOROL [Concomitant]
     Dosage: DURING DIALYSIS
  9. REQUIP [Concomitant]
  10. CADUET [Concomitant]
     Dosage: 10/20MG
  11. SODIUM BICARBONATE [Concomitant]
  12. LORTAB [Concomitant]
     Dosage: 10/650MG
  13. ALPRAZOLAM [Concomitant]
     Dosage: QD TO BID PRN

REACTIONS (4)
  - HALLUCINATION [None]
  - DYSGEUSIA [None]
  - ABNORMAL DREAMS [None]
  - INAPPROPRIATE AFFECT [None]
